FAERS Safety Report 22207114 (Version 1)
Quarter: 2023Q2

REPORT INFORMATION
  Report Type: Other
  Country: GR (occurrence: GR)
  Receive Date: 20230413
  Receipt Date: 20230413
  Transmission Date: 20230722
  Serious: Yes (Other)
  Sender: FDA-Public Use
  Company Number: GR-CELLTRION INC.-2023GR007323

PATIENT

DRUGS (7)
  1. RITUXIMAB [Suspect]
     Active Substance: RITUXIMAB
     Indication: Product used for unknown indication
  2. DOXORUBICIN HYDROCHLORIDE [Suspect]
     Active Substance: DOXORUBICIN HYDROCHLORIDE
     Indication: Product used for unknown indication
  3. BENDAMUSTINE [Suspect]
     Active Substance: BENDAMUSTINE
     Indication: Product used for unknown indication
  4. PREDNISONE [Suspect]
     Active Substance: PREDNISONE
     Indication: Product used for unknown indication
  5. CYCLOPHOSPHAMIDE [Suspect]
     Active Substance: CYCLOPHOSPHAMIDE
     Indication: Product used for unknown indication
  6. VINCRISTINE [Suspect]
     Active Substance: VINCRISTINE
     Indication: Product used for unknown indication
  7. POLATUZUMAB VEDOTIN [Suspect]
     Active Substance: POLATUZUMAB VEDOTIN
     Indication: Product used for unknown indication

REACTIONS (12)
  - Diffuse large B-cell lymphoma [Unknown]
  - Malignant pleural effusion [Unknown]
  - Hyperleukocytosis [Unknown]
  - Retroperitoneal lymphadenopathy [Unknown]
  - Lymphadenopathy mediastinal [Unknown]
  - Ill-defined disorder [Unknown]
  - Disease progression [Unknown]
  - Blood lactate dehydrogenase increased [Unknown]
  - Anaemia [Unknown]
  - Oedema [Unknown]
  - Drug ineffective [Unknown]
  - Therapeutic product effect decreased [Unknown]
